FAERS Safety Report 12707608 (Version 3)
Quarter: 2017Q3

REPORT INFORMATION
  Report Type: Report from Study
  Country: US (occurrence: US)
  Receive Date: 20160901
  Receipt Date: 20170828
  Transmission Date: 20171127
  Serious: Yes (Hospitalization)
  Sender: FDA-Public Use
  Company Number: PHHO2016US004898

PATIENT
  Age: 30 Year
  Sex: Female
  Weight: 79.9 kg

DRUGS (5)
  1. TACROLIMUS. [Suspect]
     Active Substance: TACROLIMUS
     Indication: GRAFT VERSUS HOST DISEASE
     Dosage: 0.5 MG, QOD
     Route: 048
     Dates: start: 20160723
  2. CSJ148 [Suspect]
     Active Substance: INVESTIGATIONAL PRODUCT
     Indication: CYTOMEGALOVIRUS INFECTION
     Dosage: (LJP538 50 MG/KG + LJP539 5 MG/KG) Q 4WEEKS
     Route: 042
     Dates: start: 20160217
  3. PREDNISONE. [Suspect]
     Active Substance: PREDNISONE
     Indication: GRAFT VERSUS HOST DISEASE
     Dosage: 40 MG, QD
     Route: 048
     Dates: start: 20160708
  4. MAGNESIUM AMINO ACID CHELATE [Suspect]
     Active Substance: MAGNESIUM
     Indication: PRODUCT USED FOR UNKNOWN INDICATION
     Dosage: 266 MG, BID
     Route: 048
     Dates: start: 20160325
  5. PREVPAC [Suspect]
     Active Substance: AMOXICILLIN\CLARITHROMYCIN\LANSOPRAZOLE
     Indication: EVIDENCE BASED TREATMENT
     Dosage: 1030 MG, QD (500-500-30 MG)
     Route: 048
     Dates: start: 20160422, end: 20160424

REACTIONS (4)
  - Upper respiratory tract infection [Recovered/Resolved]
  - Chest pain [Recovered/Resolved]
  - Vomiting [Recovered/Resolved]
  - Nausea [Recovered/Resolved]

NARRATIVE: CASE EVENT DATE: 20160329
